FAERS Safety Report 25988937 (Version 1)
Quarter: 2025Q4

REPORT INFORMATION
  Report Type: Spontaneous
  Country: US (occurrence: US)
  Receive Date: 20251103
  Receipt Date: 20251103
  Transmission Date: 20260119
  Serious: No
  Sender: ABBVIE
  Company Number: US-ABBVIE-6526115

PATIENT
  Sex: Female

DRUGS (1)
  1. LILETTA [Suspect]
     Active Substance: LEVONORGESTREL
     Indication: Product used for unknown indication
     Dosage: TIME INTERVAL: AS NECESSARY
     Route: 015
     Dates: start: 202505

REACTIONS (5)
  - Anxiety [Unknown]
  - Mood swings [Unknown]
  - Depression [Unknown]
  - Migraine [Unknown]
  - Pelvic pain [Unknown]

NARRATIVE: CASE EVENT DATE: 20250101
